FAERS Safety Report 16741555 (Version 1)
Quarter: 2019Q3

REPORT INFORMATION
  Report Type: Spontaneous
  Country: US (occurrence: US)
  Receive Date: 20190826
  Receipt Date: 20190826
  Transmission Date: 20191005
  Serious: No
  Sender: FDA-Public Use
  Company Number: US-ENDO PHARMACEUTICALS INC-2018-041161

PATIENT

DRUGS (1)
  1. BREVITAL SODIUM [Suspect]
     Active Substance: METHOHEXITAL SODIUM
     Indication: SEDATIVE THERAPY
     Dosage: UNK UNKNOWN, UNKNOWN
     Route: 042
     Dates: start: 20180904

REACTIONS (2)
  - Drug ineffective [Recovered/Resolved]
  - Off label use [Unknown]

NARRATIVE: CASE EVENT DATE: 20180902
